FAERS Safety Report 14619281 (Version 1)
Quarter: 2018Q1

REPORT INFORMATION
  Report Type: Spontaneous
  Country: US (occurrence: US)
  Receive Date: 20180309
  Receipt Date: 20180309
  Transmission Date: 20180509
  Serious: No
  Sender: FDA-Public Use
  Company Number: None

PATIENT
  Age: 60 Year
  Sex: Male

DRUGS (2)
  1. MAVYRET [Suspect]
     Active Substance: GLECAPREVIR\PIBRENTASVIR
  2. NICOTINE PRODUCT [Concomitant]

REACTIONS (3)
  - Nausea [None]
  - Drug dose omission [None]
  - Vomiting [None]

NARRATIVE: CASE EVENT DATE: 20180308
